FAERS Safety Report 8575971-2 (Version None)
Quarter: 2012Q3

REPORT INFORMATION
  Report Type: 
  Country: None (occurrence: None)
  Receive Date: 20120807
  Receipt Date: 20120801
  Transmission Date: 20120928
  Serious: Yes (Hospitalization)
  Sender: FDA-Public Use
  Company Number: NL-US-EMD SERONO, INC.-7096295

PATIENT
  Sex: Female
  Weight: 53 kg

DRUGS (8)
  1. OXAZEPAM [Concomitant]
     Indication: ANXIETY
     Route: 048
  2. TEMAZEPAM [Concomitant]
     Indication: INSOMNIA
     Route: 048
  3. MAGNESIUM HYDROXIDE TAB [Concomitant]
     Indication: MUSCLE SPASMS
     Route: 048
  4. PANTOPRAZOLE [Concomitant]
     Indication: GASTRIC DISORDER
     Route: 048
  5. OXYBUTYNINE [Concomitant]
     Indication: INCONTINENCE
     Route: 048
  6. ACETAMINOPHEN [Concomitant]
     Indication: PAIN
     Route: 048
  7. REBIF [Suspect]
     Indication: MULTIPLE SCLEROSIS
     Route: 058
     Dates: start: 20080521
  8. OXAZEPAM [Concomitant]
     Route: 048

REACTIONS (4)
  - PANCREATITIS ACUTE [None]
  - INJECTION SITE EXTRAVASATION [None]
  - INJECTION SITE REACTION [None]
  - CHOLELITHIASIS [None]
